FAERS Safety Report 7494495-7 (Version None)
Quarter: 2011Q2

REPORT INFORMATION
  Report Type: 
  Country: None (occurrence: None)
  Receive Date: 20110520
  Receipt Date: 20110509
  Transmission Date: 20111010
  Serious: Yes (Other)
  Sender: FDA-Public Use
  Company Number: PHHY2011NL38942

PATIENT
  Sex: Male

DRUGS (9)
  1. MELPHALAN HYDROCHLORIDE [Concomitant]
     Dosage: 2X5MG
  2. ZOMETA [Suspect]
     Dosage: 4 MG/ 5 ML
     Dates: start: 20110412
  3. BICALUTAMIDE [Concomitant]
     Dosage: 1X50MG
  4. ACETAMINOPHEN [Concomitant]
     Dosage: 2X1G
  5. IBUPROFEN [Concomitant]
     Dosage: 3X400MG
  6. ZOMETA [Suspect]
     Dosage: 4 MG/ 5 ML
     Dates: start: 20110509
  7. DEGARELIX [Concomitant]
     Dosage: UNK
  8. OMEPRAZOLE [Concomitant]
     Dosage: 1X20MG
  9. ZOMETA [Suspect]
     Indication: PROSTATE CANCER METASTATIC
     Dosage: 4 MG/ 5 ML
     Dates: start: 20110220

REACTIONS (4)
  - PAIN [None]
  - NEOPLASM MALIGNANT [None]
  - DISEASE PROGRESSION [None]
  - PROSTATIC SPECIFIC ANTIGEN INCREASED [None]
